FAERS Safety Report 23663788 (Version 1)
Quarter: 2024Q1

REPORT INFORMATION
  Report Type: Spontaneous
  Country: US (occurrence: None)
  Receive Date: 20240322
  Receipt Date: 20240322
  Transmission Date: 20240409
  Serious: No
  Sender: FDA-Public Use
  Company Number: None

PATIENT
  Age: 17 Year
  Sex: Male
  Weight: 80.8 kg

DRUGS (5)
  1. CISPLATIN [Suspect]
     Active Substance: CISPLATIN
     Dates: end: 20240210
  2. ZINECARD [Suspect]
     Active Substance: DEXRAZOXANE HYDROCHLORIDE
     Dates: start: 20240211
  3. DOXORUBICIN HYDROCHLORIDE [Suspect]
     Active Substance: DOXORUBICIN HYDROCHLORIDE
     Dates: end: 20240211
  4. FILGRASTIM [Suspect]
     Active Substance: FILGRASTIM
     Dates: end: 20240213
  5. BACTRIM [Concomitant]
     Active Substance: SULFAMETHOXAZOLE\TRIMETHOPRIM

REACTIONS (1)
  - Liver transplant [None]

NARRATIVE: CASE EVENT DATE: 20240221
